FAERS Safety Report 10601221 (Version 1)
Quarter: 2014Q4

REPORT INFORMATION
  Report Type: Report from Study
  Country: US (occurrence: US)
  Receive Date: 20141124
  Receipt Date: 20141124
  Transmission Date: 20150529
  Serious: Yes (Other)
  Sender: FDA-Public Use
  Company Number: US-JNJFOC-20141114193

PATIENT
  Sex: Female
  Weight: 70.76 kg

DRUGS (4)
  1. PROPRANOLOL [Concomitant]
     Active Substance: PROPRANOLOL\PROPRANOLOL HYDROCHLORIDE
     Indication: GASTROOESOPHAGEAL VARICEAL HAEMORRHAGE PROPHYLAXIS
     Route: 048
     Dates: start: 201407
  2. OLYSIO [Suspect]
     Active Substance: SIMEPREVIR
     Indication: HEPATITIS C
     Route: 048
     Dates: start: 20140724, end: 20141016
  3. PANTOPRAZOLE [Concomitant]
     Active Substance: PANTOPRAZOLE SODIUM
     Indication: GASTROOESOPHAGEAL VARICEAL HAEMORRHAGE PROPHYLAXIS
     Route: 048
     Dates: start: 201407
  4. SOFOSBUVIR [Suspect]
     Active Substance: SOFOSBUVIR
     Indication: HEPATITIS C
     Route: 065

REACTIONS (6)
  - Nausea [Unknown]
  - Photosensitivity reaction [Not Recovered/Not Resolved]
  - Pyrexia [Recovered/Resolved]
  - Surgery [Unknown]
  - Feeling cold [Not Recovered/Not Resolved]
  - Chills [Recovered/Resolved]

NARRATIVE: CASE EVENT DATE: 2014
